FAERS Safety Report 4282430-4 (Version None)
Quarter: 2004Q1

REPORT INFORMATION
  Report Type: 
  Country: None (occurrence: None)
  Receive Date: 20040112
  Receipt Date: 20031117
  Transmission Date: 20041129
  Serious: No
  Sender: FDA-Public Use
  Company Number: PHEH2003US10629

PATIENT
  Age: 51 Year
  Sex: Female

DRUGS (1)
  1. ELIDEL [Suspect]
     Indication: ECZEMA
     Dosage: BID, TOPICAL
     Route: 061
     Dates: start: 20031101

REACTIONS (4)
  - APPLICATION SITE WARMTH [None]
  - FEELING ABNORMAL [None]
  - HYPOAESTHESIA [None]
  - LYMPHADENOPATHY [None]
